FAERS Safety Report 7607045-9 (Version None)
Quarter: 2011Q3

REPORT INFORMATION
  Report Type: 
  Country: None (occurrence: None)
  Receive Date: 20110713
  Receipt Date: 20110630
  Transmission Date: 20111222
  Serious: Yes (Hospitalization)
  Sender: FDA-Public Use
  Company Number: CA-JNJFOC-20110701637

PATIENT
  Sex: Female
  Weight: 67 kg

DRUGS (13)
  1. DOCUSATE [Concomitant]
  2. FOLIC ACID [Concomitant]
  3. REMICADE [Suspect]
     Dosage: #28
     Route: 042
     Dates: start: 20110531
  4. SCOPOLAMINE [Concomitant]
  5. CALCIUM CARBONATE [Concomitant]
  6. VITAMIN B-12 [Concomitant]
  7. PROMETRIUM [Concomitant]
  8. ZOPICLONE [Concomitant]
  9. METHADONE HCL [Concomitant]
  10. FLONASE [Concomitant]
  11. PREMARIN [Concomitant]
  12. REMICADE [Suspect]
     Indication: CROHN'S DISEASE
     Route: 042
     Dates: start: 20080924
  13. VENTOLIN HFA [Concomitant]

REACTIONS (3)
  - HEADACHE [None]
  - HYPOAESTHESIA [None]
  - PARAESTHESIA [None]
